FAERS Safety Report 6764829-7 (Version None)
Quarter: 2010Q2

REPORT INFORMATION
  Report Type: 
  Country: None (occurrence: None)
  Receive Date: 20100610
  Receipt Date: 20100610
  Transmission Date: 20101027
  Serious: Yes (Death, Hospitalization)
  Sender: FDA-Public Use
  Company Number: DE-EISAI INC.-E2090-01198-SPO-DE

PATIENT
  Sex: Male
  Weight: 85 kg

DRUGS (2)
  1. ZONEGRAN [Suspect]
     Route: 048
     Dates: start: 20090801, end: 20100501
  2. ERGENYL CHRONO [Concomitant]
     Route: 048
     Dates: start: 20090801

REACTIONS (2)
  - PYELONEPHRITIS [None]
  - SKIN REACTION [None]
